FAERS Safety Report 25364987 (Version 1)
Quarter: 2025Q2

REPORT INFORMATION
  Report Type: Spontaneous
  Country: US (occurrence: US)
  Receive Date: 20250527
  Receipt Date: 20250527
  Transmission Date: 20250716
  Serious: No
  Sender: SANOFI AVENTIS
  Company Number: US-SA-2025SA149603

PATIENT
  Age: 44 Year
  Sex: Male
  Weight: 140.91 kg

DRUGS (14)
  1. DUPIXENT [Suspect]
     Active Substance: DUPILUMAB
     Indication: Dermatitis atopic
     Dosage: 300 MG, QOW
     Route: 058
  2. DUPIXENT [Suspect]
     Active Substance: DUPILUMAB
     Indication: Dermatitis
  3. MUPIROCIN [Concomitant]
     Active Substance: MUPIROCIN
  4. TRIAMCINOLONE ACETONIDE [Concomitant]
     Active Substance: TRIAMCINOLONE ACETONIDE
  5. IRBESARTAN [Concomitant]
     Active Substance: IRBESARTAN
  6. PROBENECID [Concomitant]
     Active Substance: PROBENECID
  7. EZETIMIBE [Concomitant]
     Active Substance: EZETIMIBE
  8. ALLOPURINOL [Concomitant]
     Active Substance: ALLOPURINOL
  9. VITAMIN D3 [Concomitant]
     Active Substance: CHOLECALCIFEROL
  10. LISINOPRIL [Concomitant]
     Active Substance: LISINOPRIL
  11. FUROSEMIDE [Concomitant]
     Active Substance: FUROSEMIDE
  12. CARVEDILOL [Concomitant]
     Active Substance: CARVEDILOL
  13. DEPAKOTE [Concomitant]
     Active Substance: DIVALPROEX SODIUM
  14. WEGOVY [Concomitant]
     Active Substance: SEMAGLUTIDE

REACTIONS (4)
  - Dermatitis [Unknown]
  - Fatigue [Unknown]
  - Dermatitis atopic [Unknown]
  - Product use in unapproved indication [Unknown]

NARRATIVE: CASE EVENT DATE: 20250501
